FAERS Safety Report 18118772 (Version 1)
Quarter: 2020Q3

REPORT INFORMATION
  Report Type: Spontaneous
  Country: US (occurrence: US)
  Receive Date: 20200806
  Receipt Date: 20200806
  Transmission Date: 20201103
  Serious: Yes (Disabling)
  Sender: FDA-Public Use
  Company Number: None

PATIENT
  Age: 41 Year
  Sex: Female
  Weight: 90 kg

DRUGS (1)
  1. LAMOTRIGINE 300MG EXTENDED RELEASE [Suspect]
     Active Substance: LAMOTRIGINE
     Indication: EPILEPSY

REACTIONS (4)
  - Blindness unilateral [None]
  - Treatment failure [None]
  - Dysarthria [None]
  - Gait disturbance [None]

NARRATIVE: CASE EVENT DATE: 20200701
